FAERS Safety Report 6074916-7 (Version None)
Quarter: 2009Q1

REPORT INFORMATION
  Report Type: 
  Country: None (occurrence: None)
  Receive Date: 20090212
  Receipt Date: 20090205
  Transmission Date: 20090719
  Serious: Yes (Life-Threatening, Hospitalization)
  Sender: FDA-Public Use
  Company Number: US-ASTRAZENECA-2009UW03418

PATIENT
  Age: 52 Year
  Sex: Male

DRUGS (3)
  1. SEROQUEL [Suspect]
     Indication: AGITATION
     Route: 048
     Dates: start: 20090107, end: 20090107
  2. VALIUM [Interacting]
     Indication: AGITATION
     Dates: start: 20090107, end: 20090107
  3. DILANTIN [Concomitant]
     Indication: CONVULSION
     Route: 048

REACTIONS (2)
  - DRUG INTERACTION [None]
  - HYPOTENSION [None]
